FAERS Safety Report 4722864-4 (Version None)
Quarter: 2005Q3

REPORT INFORMATION
  Report Type: 
  Country: None (occurrence: None)
  Receive Date: 20050722
  Receipt Date: 20050711
  Transmission Date: 20060218
  Serious: Yes (Hospitalization)
  Sender: FDA-Public Use
  Company Number: DE-GLAXOSMITHKLINE-D0047067A

PATIENT
  Age: 17 Year
  Sex: Female
  Weight: 57 kg

DRUGS (8)
  1. SEROXAT [Suspect]
     Route: 048
  2. AKINETON [Suspect]
     Route: 048
  3. SOLIAN [Suspect]
     Route: 048
  4. ATOSIL [Concomitant]
     Dosage: 25U AS REQUIRED
     Route: 065
  5. ABILIFY [Concomitant]
     Dosage: 10MG IN THE MORNING
     Route: 065
  6. RISPERDAL [Concomitant]
     Route: 065
  7. MIRTAZAPINE [Concomitant]
     Dosage: 20U AT NIGHT
     Route: 065
  8. ORAL CONTRACEPTIVE PILL [Concomitant]
     Route: 048

REACTIONS (3)
  - INTENTIONAL MISUSE [None]
  - MYDRIASIS [None]
  - SUICIDE ATTEMPT [None]
